FAERS Safety Report 20476677 (Version 1)
Quarter: 2022Q1

REPORT INFORMATION
  Report Type: Spontaneous
  Country: US (occurrence: US)
  Receive Date: 20220215
  Receipt Date: 20220215
  Transmission Date: 20220423
  Serious: No
  Sender: FDA-Public Use
  Company Number: US-SANOFI-00959355

PATIENT
  Sex: Female

DRUGS (1)
  1. DUPIXENT [Suspect]
     Active Substance: DUPILUMAB
     Indication: Dermatitis atopic
     Dosage: 300 MG, QOW

REACTIONS (9)
  - Pruritus [Unknown]
  - Flushing [Unknown]
  - Skin irritation [Unknown]
  - Excessive eye blinking [Unknown]
  - Skin disorder [Unknown]
  - Erythema [Unknown]
  - Skin erosion [Unknown]
  - Skin discharge [Unknown]
  - Eye pruritus [Unknown]
